FAERS Safety Report 6208591-5 (Version None)
Quarter: 2009Q2

REPORT INFORMATION
  Report Type: 
  Country: None (occurrence: None)
  Receive Date: 20090522
  Receipt Date: 20090226
  Transmission Date: 20091009
  Serious: No
  Sender: FDA-Public Use
  Company Number: 8043636

PATIENT
  Age: 41 Year
  Sex: Male

DRUGS (1)
  1. CIMZIA [Suspect]
     Indication: CROHN'S DISEASE
     Dosage: 200 MG SC
     Route: 058
     Dates: start: 20081228

REACTIONS (2)
  - DEVICE LEAKAGE [None]
  - THERAPY REGIMEN CHANGED [None]
